FAERS Safety Report 24697661 (Version 1)
Quarter: 2024Q4

REPORT INFORMATION
  Report Type: Spontaneous
  Country: US (occurrence: US)
  Receive Date: 20241204
  Receipt Date: 20241204
  Transmission Date: 20250114
  Serious: Yes (Hospitalization)
  Sender: PACIRA
  Company Number: US-ORG100016242-2024000679

PATIENT

DRUGS (1)
  1. EXPAREL [Suspect]
     Active Substance: BUPIVACAINE
     Indication: Pain management
     Dosage: NOT PROVIDED
     Route: 065

REACTIONS (3)
  - Hospitalisation [Unknown]
  - Emergency care [Unknown]
  - Adverse event [Unknown]
